FAERS Safety Report 7082733-4 (Version None)
Quarter: 2010Q4

REPORT INFORMATION
  Report Type: 
  Country: None (occurrence: None)
  Receive Date: 20101026
  Receipt Date: 20101018
  Transmission Date: 20110411
  Serious: No
  Sender: FDA-Public Use
  Company Number: 2010005480

PATIENT
  Sex: Female

DRUGS (2)
  1. FENTORA [Suspect]
     Indication: MUSCULOSKELETAL DISCOMFORT
     Dosage: BU
     Route: 002
  2. PERCOCET [Concomitant]

REACTIONS (1)
  - DRUG PRESCRIBING ERROR [None]
